FAERS Safety Report 5098101-0 (Version None)
Quarter: 2006Q3

REPORT INFORMATION
  Report Type: 
  Country: None (occurrence: None)
  Receive Date: 20060906
  Receipt Date: 20060411
  Transmission Date: 20061208
  Serious: No
  Sender: FDA-Public Use
  Company Number: US-GLAXOSMITHKLINE-A0601376A

PATIENT
  Age: 64 Year
  Sex: Male

DRUGS (6)
  1. REQUIP [Suspect]
     Indication: RESTLESS LEGS SYNDROME
     Dosage: .75MG AT NIGHT
     Route: 048
     Dates: start: 20060302
  2. SINGULAIR [Concomitant]
  3. ZOCOR [Concomitant]
  4. PAXIL CR [Concomitant]
  5. ADVAIR DISKUS 100/50 [Concomitant]
  6. VITAMINS [Concomitant]

REACTIONS (3)
  - MACULAR OPACITY [None]
  - RETINAL TEAR [None]
  - VISION BLURRED [None]
